FAERS Safety Report 8950226 (Version 1)
Quarter: 2012Q4

REPORT INFORMATION
  Report Type: 
  Country: US (occurrence: US)
  Receive Date: 20121205
  Receipt Date: 20121205
  Transmission Date: 20130627
  Serious: Yes (Other)
  Sender: FDA-Public Use
  Company Number: US-ASTELLAS-2010002995

PATIENT
  Sex: Female

DRUGS (2)
  1. TARCEVA [Suspect]
     Indication: NON-SMALL CELL LUNG CANCER RECURRENT
     Dosage: 100 mg, UID/QD
     Route: 048
  2. AVASTIN [Suspect]
     Indication: MACULAR DEGENERATION
     Dosage: UNK
     Route: 031

REACTIONS (11)
  - Incorrect dose administered [Unknown]
  - Neoplasm [Unknown]
  - Eyelid oedema [Not Recovered/Not Resolved]
  - Eye pain [Not Recovered/Not Resolved]
  - Skin discomfort [Not Recovered/Not Resolved]
  - Malaise [Not Recovered/Not Resolved]
  - Eye discharge [Not Recovered/Not Resolved]
  - Conjunctivitis [Not Recovered/Not Resolved]
  - Eye discharge [Not Recovered/Not Resolved]
  - Eye swelling [Not Recovered/Not Resolved]
  - Rash [Unknown]
